FAERS Safety Report 5936296-4 (Version None)
Quarter: 2008Q4

REPORT INFORMATION
  Report Type: 
  Country: None (occurrence: None)
  Receive Date: 20081030
  Receipt Date: 20081023
  Transmission Date: 20090506
  Serious: Yes (Other)
  Sender: FDA-Public Use
  Company Number: US-AVENTIS-200817165US

PATIENT
  Sex: Female

DRUGS (4)
  1. LOVENOX [Suspect]
     Indication: PULMONARY EMBOLISM
     Route: 051
     Dates: start: 20081001
  2. ANTIHYPERTENSIVES [Concomitant]
     Dosage: DOSE: UNK
  3. ARIMIDEX [Concomitant]
     Dosage: DOSE: UNK
  4. SIMVASTATIN [Concomitant]
     Dosage: DOSE: UNK

REACTIONS (1)
  - RENAL IMPAIRMENT [None]
